FAERS Safety Report 21327108 (Version 2)
Quarter: 2022Q4

REPORT INFORMATION
  Report Type: Report from Study
  Country: JP (occurrence: JP)
  Receive Date: 20220913
  Receipt Date: 20221108
  Transmission Date: 20230113
  Serious: Yes (Disabling, Other)
  Sender: FDA-Public Use
  Company Number: JP-GSKJP-JP2022JPN126957

PATIENT
  Sex: Female

DRUGS (1)
  1. BOTULINUM TOXIN TYPE A [Suspect]
     Active Substance: BOTULINUM TOXIN TYPE A
     Indication: Hypertonic bladder
     Dosage: 100 UNITS, SINGLE
     Dates: start: 20210107, end: 20210107

REACTIONS (5)
  - Urinary retention [Not Recovered/Not Resolved]
  - Cystitis [Recovering/Resolving]
  - Cystitis [Recovering/Resolving]
  - Cystitis [Recovering/Resolving]
  - Cystitis [Recovering/Resolving]

NARRATIVE: CASE EVENT DATE: 20210218
